FAERS Safety Report 6882611-7 (Version None)
Quarter: 2010Q3

REPORT INFORMATION
  Report Type: 
  Country: None (occurrence: None)
  Receive Date: 20100729
  Receipt Date: 20100719
  Transmission Date: 20110219
  Serious: Yes (Other)
  Sender: FDA-Public Use
  Company Number: US-JNJFOC-20100601543

PATIENT
  Sex: Male
  Weight: 2.95 kg

DRUGS (8)
  1. REMICADE [Suspect]
     Indication: DRUG EXPOSURE DURING PREGNANCY
     Route: 064
  2. REMICADE [Suspect]
     Route: 064
  3. CHOLESTYRAMINE [Concomitant]
     Route: 065
  4. PRENATAL MULTIPLE VITAMIN [Concomitant]
     Route: 065
  5. ASCORBIC ACID [Concomitant]
     Route: 065
  6. VITAMIN D [Concomitant]
     Route: 065
  7. CALCIUM [Concomitant]
     Route: 065
  8. MAGNESIUM [Concomitant]
     Route: 065

REACTIONS (1)
  - PREMATURE BABY [None]
